FAERS Safety Report 18237526 (Version 1)
Quarter: 2020Q3

REPORT INFORMATION
  Report Type: Spontaneous
  Country: GB (occurrence: GB)
  Receive Date: 20200907
  Receipt Date: 20200907
  Transmission Date: 20201103
  Serious: Yes (Hospitalization, Other)
  Sender: FDA-Public Use
  Company Number: GB-ACCORD-199453

PATIENT
  Age: 41 Year
  Sex: Male
  Weight: 80 kg

DRUGS (8)
  1. CLOZAPINE. [Suspect]
     Active Substance: CLOZAPINE
     Indication: SCHIZOAFFECTIVE DISORDER
     Dosage: TITRATION COMMENCED ON 14TH JULY, DOSE ON 1ST AUGUST WAS 300MG
     Route: 048
     Dates: start: 20200714, end: 20200801
  2. ACETYLSALICYLIC ACID [Concomitant]
     Active Substance: ASPIRIN
  3. BISOPROLOL [Concomitant]
     Active Substance: BISOPROLOL
  4. SIMVASTATIN. [Concomitant]
     Active Substance: SIMVASTATIN
  5. COLECALCIFEROL [Concomitant]
     Active Substance: CHOLECALCIFEROL
  6. ADCAL [Concomitant]
  7. CLOBETASONE [Concomitant]
     Active Substance: CLOBETASONE
  8. INSULIN [Concomitant]
     Active Substance: INSULIN NOS

REACTIONS (6)
  - Nausea [Recovered/Resolved]
  - Pyrexia [Recovered/Resolved]
  - Influenza like illness [Recovered/Resolved]
  - Pneumonia [Unknown]
  - Cough [Recovered/Resolved]
  - Acute myocardial infarction [Recovered/Resolved]

NARRATIVE: CASE EVENT DATE: 20200730
